FAERS Safety Report 15151992 (Version 2)
Quarter: 2018Q4

REPORT INFORMATION
  Report Type: Report from Study
  Country: JP (occurrence: JP)
  Receive Date: 20180717
  Receipt Date: 20181003
  Transmission Date: 20190204
  Serious: Yes (Death)
  Sender: FDA-Public Use
  Company Number: JP-AMGEN-JPNCT2018095067

PATIENT
  Age: 76 Year
  Sex: Male

DRUGS (4)
  1. VANCOMYCIN [Concomitant]
     Active Substance: VANCOMYCIN
     Indication: URINARY TRACT INFECTION
     Dosage: 1 G, UNK
     Route: 065
     Dates: end: 20161006
  2. MEROPENEM. [Concomitant]
     Active Substance: MEROPENEM
     Indication: URINARY TRACT INFECTION
     Dosage: 2 G, UNK
     Route: 065
     Dates: end: 20161003
  3. DARBEPOETIN ALFA [Suspect]
     Active Substance: DARBEPOETIN ALFA
     Indication: MYELODYSPLASTIC SYNDROME
     Dosage: 120 MUG, UNK
     Route: 058
     Dates: start: 20160928, end: 20161005
  4. DARBEPOETIN ALFA [Suspect]
     Active Substance: DARBEPOETIN ALFA
     Dosage: 120 MUG, QWK
     Route: 058
     Dates: start: 20161007, end: 20161007

REACTIONS (1)
  - Urinary tract infection [Fatal]
